FAERS Safety Report 15700303 (Version 2)
Quarter: 2019Q2

REPORT INFORMATION
  Report Type: Spontaneous
  Country: BR (occurrence: BR)
  Receive Date: 20181207
  Receipt Date: 20190401
  Transmission Date: 20190711
  Serious: Yes (Disabling, Other)
  Sender: FDA-Public Use
  Company Number: BR-ALLERGAN-1853331US

PATIENT
  Sex: Female
  Weight: 72 kg

DRUGS (2)
  1. OZURDEX [Suspect]
     Active Substance: DEXAMETHASONE
     Indication: MACULAR OEDEMA
     Dosage: UNK
     Route: 031
     Dates: start: 20181009, end: 20181009
  2. OZURDEX [Suspect]
     Active Substance: DEXAMETHASONE
     Dosage: UNK
     Route: 031
     Dates: start: 20181005, end: 20181005

REACTIONS (4)
  - Macular oedema [Recovering/Resolving]
  - Device issue [Unknown]
  - Procedural pain [Unknown]
  - Uveitis [Not Recovered/Not Resolved]

NARRATIVE: CASE EVENT DATE: 20181005
